FAERS Safety Report 8390181-X (Version None)
Quarter: 2012Q2

REPORT INFORMATION
  Report Type: 
  Country: None (occurrence: None)
  Receive Date: 20120529
  Receipt Date: 20120521
  Transmission Date: 20120825
  Serious: Yes (Hospitalization, Other)
  Sender: FDA-Public Use
  Company Number: FR-PFIZER INC-2012105754

PATIENT
  Age: 82 Year
  Sex: Male
  Weight: 58 kg

DRUGS (5)
  1. INLYTA [Suspect]
     Indication: RENAL CANCER METASTATIC
     Dosage: 5 MG, 2X/DAY
     Route: 048
     Dates: start: 20120413
  2. PREDNISONE TAB [Concomitant]
     Indication: PULMONARY FIBROSIS
     Dosage: 20 MG, 1X/DAY
     Route: 048
     Dates: start: 20120411
  3. ATACAND [Concomitant]
     Dosage: 16 MG, 1X/DAY
     Route: 048
  4. NICARDIPINE HYDROCHLORIDE [Concomitant]
     Dosage: 50 MG TOTAL DAILY IN 3 INTAKES
     Route: 048
     Dates: start: 20120421
  5. PANTOPRAZOLE SODIUM [Concomitant]

REACTIONS (5)
  - HYPERTENSION [None]
  - HYPOTENSION [None]
  - MALAISE [None]
  - POLYCYTHAEMIA [None]
  - ISCHAEMIC STROKE [None]
